FAERS Safety Report 14602727 (Version 1)
Quarter: 2018Q1

REPORT INFORMATION
  Report Type: Report from Study
  Country: US (occurrence: US)
  Receive Date: 20180306
  Receipt Date: 20180306
  Transmission Date: 20180509
  Serious: No
  Sender: FDA-Public Use
  Company Number: PHEH2018US007632

PATIENT
  Sex: Female
  Weight: 64.85 kg

DRUGS (1)
  1. PENICILLIN VK/OSPEN/APSIN VK/STABILIN VK/VEEPEN [Suspect]
     Active Substance: PENICILLIN V POTASSIUM
     Indication: PRODUCT USED FOR UNKNOWN INDICATION
     Route: 065

REACTIONS (1)
  - Drug hypersensitivity [Unknown]
